FAERS Safety Report 8010740-3 (Version None)
Quarter: 2011Q4

REPORT INFORMATION
  Report Type: 
  Country: None (occurrence: None)
  Receive Date: 20111228
  Receipt Date: 20111214
  Transmission Date: 20120403
  Serious: Yes (Hospitalization)
  Sender: FDA-Public Use
  Company Number: NL-MEDIMMUNE-MEDI-0013866

PATIENT
  Sex: Male
  Weight: 5.49 kg

DRUGS (1)
  1. SYNAGIS [Suspect]
     Indication: PREMATURE BABY
     Route: 030
     Dates: start: 20110909, end: 20111212

REACTIONS (9)
  - RESPIRATORY RATE INCREASED [None]
  - HYPOPHAGIA [None]
  - FLUID INTAKE REDUCED [None]
  - LISTLESS [None]
  - SKIN WARM [None]
  - FEELING HOT [None]
  - PYREXIA [None]
  - CRYING [None]
  - VOMITING [None]
